FAERS Safety Report 8538705-3 (Version None)
Quarter: 2012Q3

REPORT INFORMATION
  Report Type: 
  Country: None (occurrence: None)
  Receive Date: 20120718
  Receipt Date: 20120718
  Transmission Date: 20120928
  Serious: Yes (Other)
  Sender: FDA-Public Use
  Company Number: None

PATIENT
  Age: 28 Year
  Sex: Female
  Weight: 60 kg

DRUGS (1)
  1. METHYLENE BLUE 10 MG/ML AMERICAN REGEANT [Suspect]
     Indication: PARATHYROID DISORDER
     Dosage: 450 MG ONCE INTRAVENOUS (DILUTED IN 500 (ML)
     Route: 042
     Dates: start: 20120518

REACTIONS (2)
  - APPLICATION SITE BURN [None]
  - MEDICAL DEVICE COMPLICATION [None]
